FAERS Safety Report 17451258 (Version 1)
Quarter: 2020Q1

REPORT INFORMATION
  Report Type: Report from Study
  Country: AR (occurrence: AR)
  Receive Date: 20200224
  Receipt Date: 20200224
  Transmission Date: 20200409
  Serious: Yes (Death, Hospitalization, Other)
  Sender: FDA-Public Use
  Company Number: NVSC2020AR042701

PATIENT
  Age: 66 Year
  Sex: Female

DRUGS (1)
  1. KISQALI [Suspect]
     Active Substance: RIBOCICLIB
     Indication: BREAST CANCER
     Dosage: 600 MG, QD
     Route: 065
     Dates: start: 20181010, end: 201910

REACTIONS (12)
  - Choroidal effusion [Unknown]
  - Asthenia [Unknown]
  - Breast cancer [Recovering/Resolving]
  - Malignant neoplasm progression [Recovering/Resolving]
  - Decreased appetite [Unknown]
  - Blood pressure increased [Unknown]
  - Dyspnoea [Unknown]
  - Cardiac arrest [Fatal]
  - Metastases to neck [Unknown]
  - Urinary incontinence [Unknown]
  - Anxiety [Unknown]
  - Metastases to lung [Fatal]

NARRATIVE: CASE EVENT DATE: 2019
